FAERS Safety Report 6692596-4 (Version None)
Quarter: 2010Q2

REPORT INFORMATION
  Report Type: 
  Country: None (occurrence: None)
  Receive Date: 20100422
  Receipt Date: 20100414
  Transmission Date: 20101027
  Serious: Yes (Other)
  Sender: FDA-Public Use
  Company Number: GB-PFIZER INC-2010046811

PATIENT
  Age: 37 Year
  Sex: Female
  Weight: 66 kg

DRUGS (8)
  1. CHAMPIX [Suspect]
     Dosage: 1 MG, 2X/DAY
     Route: 048
     Dates: start: 20100310
  2. DALIVIT [Concomitant]
     Dosage: 1 DF, 1X/DAY
     Dates: start: 20091116
  3. FERROUS SULFATE TAB [Concomitant]
     Dosage: 1 DF, 2X/DAY
     Route: 048
     Dates: start: 20091209, end: 20100109
  4. HYDROXOCOBALAMIN [Concomitant]
     Dosage: 1 MG, UNK
     Route: 030
  5. LANSOPRAZOLE [Concomitant]
     Dosage: 15 MG, UNK
     Dates: start: 20100203
  6. PIROXICAM [Concomitant]
  7. SALBUTAMOL [Concomitant]
     Dosage: 2 DF, AS NEEDED
  8. SERETIDE [Concomitant]
     Dosage: 250 MG, 2X/DAY
     Route: 048
     Dates: start: 20050204

REACTIONS (2)
  - ABDOMINAL DISCOMFORT [None]
  - OESOPHAGEAL PAIN [None]
